FAERS Safety Report 9927931 (Version 1)
Quarter: 2014Q1

REPORT INFORMATION
  Report Type: Spontaneous
  Country: US (occurrence: None)
  Receive Date: 20140226
  Receipt Date: 20140226
  Transmission Date: 20141002
  Serious: No
  Sender: FDA-Public Use
  Company Number: None

PATIENT
  Age: 78 Year
  Sex: Male
  Weight: 97.98 kg

DRUGS (5)
  1. GAMUNEX-C (10 PCT) [Suspect]
     Indication: CHRONIC INFLAMMATORY DEMYELINATING POLYRADICULONEUROPATHY
     Route: 042
     Dates: start: 20140113, end: 20140114
  2. SOU MEDROL [Concomitant]
  3. BENDRYL CHILD ALLERGY [Concomitant]
  4. IVIG [Concomitant]
  5. TYLENOL [Concomitant]

REACTIONS (2)
  - Rash generalised [None]
  - Rash erythematous [None]
